FAERS Safety Report 5251235-X (Version None)
Quarter: 2007Q1

REPORT INFORMATION
  Report Type: 
  Country: None (occurrence: None)
  Receive Date: 20070228
  Receipt Date: 20061212
  Transmission Date: 20070707
  Serious: Yes (Disabling)
  Sender: FDA-Public Use
  Company Number: US-GLAXOSMITHKLINE-A0631317A

PATIENT
  Age: 45 Year
  Sex: Male

DRUGS (2)
  1. LAMICTAL [Suspect]
     Indication: BIPOLAR DISORDER
     Dosage: 100MG PER DAY
     Route: 048
     Dates: start: 20060101
  2. PAXIL CR [Concomitant]

REACTIONS (3)
  - ABNORMAL DREAMS [None]
  - VISION BLURRED [None]
  - VISUAL DISTURBANCE [None]
